FAERS Safety Report 6216107-2 (Version None)
Quarter: 2009Q2

REPORT INFORMATION
  Report Type: 
  Country: None (occurrence: None)
  Receive Date: 20090603
  Receipt Date: 20090603
  Transmission Date: 20091009
  Serious: Yes (Life-Threatening, Disabling)
  Sender: FDA-Public Use
  Company Number: None

PATIENT
  Age: 89 Year
  Sex: Female
  Weight: 74.8435 kg

DRUGS (1)
  1. CIPRO [Suspect]
     Indication: BLADDER DISORDER
     Dosage: 2 TIMES A DAY MORNING AND EVE 5 DAYS
     Dates: start: 20090412

REACTIONS (2)
  - GASTROINTESTINAL DISORDER [None]
  - HALLUCINATION, VISUAL [None]
